FAERS Safety Report 21502334 (Version 1)
Quarter: 2022Q4

REPORT INFORMATION
  Report Type: Report from Study
  Country: US (occurrence: US)
  Receive Date: 20221025
  Receipt Date: 20221025
  Transmission Date: 20230112
  Serious: No
  Sender: FDA-Public Use
  Company Number: US-KADMON-US-KAD-22-00700

PATIENT
  Age: 71 Year
  Sex: Female

DRUGS (10)
  1. REZUROCK [Suspect]
     Active Substance: BELUMOSUDIL
     Indication: Graft versus host disease
     Dosage: 200 MILLIGRAM, QD
     Route: 065
     Dates: start: 20210801, end: 20220615
  2. LISINOPRIL [Concomitant]
     Active Substance: LISINOPRIL
     Indication: Hypertension
     Dosage: 20 MILLIGRAM, QD
     Dates: end: 20220726
  3. AMLODIPINE BESYLATE [Concomitant]
     Active Substance: AMLODIPINE BESYLATE
     Indication: Hypertension
     Dosage: 5 MILLIGRAM, QD
     Dates: end: 20220726
  4. VITAMIN D NOS [Concomitant]
     Active Substance: VITAMIN D NOS
     Indication: Product used for unknown indication
     Dosage: 1000 INTERNATIONAL UNIT, BID
     Dates: end: 20220726
  5. ACYCLOVIR [Concomitant]
     Active Substance: ACYCLOVIR
     Indication: Immune system disorder
     Dosage: 400 MILLIGRAM, BID
     Dates: end: 20220726
  6. FAMOTIDINE [Concomitant]
     Active Substance: FAMOTIDINE
     Indication: Dyspepsia
     Dosage: 20 MILLIGRAM, PRN
     Dates: end: 20220726
  7. ASMANEX [Concomitant]
     Active Substance: MOMETASONE FUROATE
     Indication: Respiratory disorder
     Dosage: 110 UNK, QD
     Dates: end: 20220726
  8. MIRTAZAPINE [Concomitant]
     Active Substance: MIRTAZAPINE
     Indication: Depression
     Dosage: 30 MILLIGRAM, QN
     Dates: end: 20220725
  9. LORAZEPAM PIVALATE [Concomitant]
     Indication: Poor quality sleep
     Dosage: 1 MILLIGRAM, QN
     Dates: end: 20220725
  10. PREMARIN [Concomitant]
     Active Substance: ESTROGENS, CONJUGATED
     Indication: Urinary tract discomfort
     Dosage: 0.625 MILLIGRAM, BIW
     Dates: end: 20220724

REACTIONS (2)
  - White blood cell count increased [Not Recovered/Not Resolved]
  - Blood triglycerides increased [Not Recovered/Not Resolved]

NARRATIVE: CASE EVENT DATE: 20220726
